FAERS Safety Report 8421882-2 (Version None)
Quarter: 2012Q2

REPORT INFORMATION
  Report Type: 
  Country: None (occurrence: None)
  Receive Date: 20120608
  Receipt Date: 20120601
  Transmission Date: 20120825
  Serious: Yes (Other)
  Sender: FDA-Public Use
  Company Number: PHHY2012GB047023

PATIENT
  Age: 72 Year
  Sex: Female
  Weight: 66 kg

DRUGS (8)
  1. CLOPIDOGREL [Concomitant]
  2. FUROSEMIDE [Concomitant]
  3. ALFACALCIDOL [Concomitant]
  4. NIFEDIPINE [Concomitant]
  5. ISOSORBIDE DINITRATE [Concomitant]
  6. DOXAZOSIN MESYLATE [Suspect]
     Indication: HYPERTENSION
     Dosage: 2 MG, BID
     Route: 048
     Dates: start: 20120222, end: 20120501
  7. ATORVASTATIN CALCIUM [Concomitant]
  8. LEVOTHYROXINE SODIUM [Concomitant]

REACTIONS (1)
  - SUICIDAL IDEATION [None]
